FAERS Safety Report 18180774 (Version 5)
Quarter: 2023Q1

REPORT INFORMATION
  Report Type: Spontaneous
  Country: DE (occurrence: DE)
  Receive Date: 20200821
  Receipt Date: 20230216
  Transmission Date: 20230418
  Serious: Yes (Hospitalization)
  Sender: FDA-Public Use
  Company Number: None

PATIENT
  Age: 36 Year
  Sex: Male

DRUGS (1)
  1. ACYCLOVIR [Suspect]
     Active Substance: ACYCLOVIR
     Indication: Product used for unknown indication
     Dosage: 400 MG,EVERY 4 H,
     Route: 048

REACTIONS (4)
  - Prescribed underdose [Unknown]
  - Rash [Unknown]
  - Eye pain [Unknown]
  - Product prescribing error [Unknown]
